FAERS Safety Report 15233457 (Version 1)
Quarter: 2018Q3

REPORT INFORMATION
  Report Type: Spontaneous
  Country: FR (occurrence: FR)
  Receive Date: 20180802
  Receipt Date: 20180802
  Transmission Date: 20181010
  Serious: Yes (Other)
  Sender: FDA-Public Use
  Company Number: FR-SAKK-2018SA164083AA

PATIENT
  Age: 76 Year
  Sex: Male

DRUGS (3)
  1. PREVISCAN [FLUINDIONE] [Interacting]
     Active Substance: FLUINDIONE
     Indication: ATRIAL FIBRILLATION
     Dosage: 25 MG, QOD
     Route: 048
     Dates: end: 20180111
  2. PREVISCAN [FLUINDIONE] [Interacting]
     Active Substance: FLUINDIONE
     Dosage: 30 UNK
     Route: 048
     Dates: end: 20180111
  3. PLAVIX [Suspect]
     Active Substance: CLOPIDOGREL BISULFATE
     Indication: CORONARY ARTERY DISEASE
     Dosage: 75 MG, QD
     Route: 048
     Dates: end: 20180111

REACTIONS (2)
  - Microcytic anaemia [Recovered/Resolved]
  - International normalised ratio increased [Recovered/Resolved]

NARRATIVE: CASE EVENT DATE: 20180111
